FAERS Safety Report 22156752 (Version 1)
Quarter: 2023Q1

REPORT INFORMATION
  Report Type: Spontaneous
  Country: CN (occurrence: CN)
  Receive Date: 20230330
  Receipt Date: 20230330
  Transmission Date: 20230418
  Serious: Yes (Life-Threatening, Hospitalization)
  Sender: FDA-Public Use
  Company Number: CN-PFIZER INC-PV202300057244

PATIENT
  Age: 44 Year
  Sex: Male
  Weight: 57 kg

DRUGS (1)
  1. SUNITINIB MALATE [Suspect]
     Active Substance: SUNITINIB MALATE
     Indication: Targeted cancer therapy
     Dosage: 50 MG, 1X/DAY
     Route: 048
     Dates: start: 20230228, end: 20230312

REACTIONS (2)
  - Platelet count decreased [Recovering/Resolving]
  - Myelosuppression [Unknown]

NARRATIVE: CASE EVENT DATE: 20230312
